FAERS Safety Report 21321599 (Version 1)
Quarter: 2022Q3

REPORT INFORMATION
  Report Type: Spontaneous
  Country: US (occurrence: None)
  Receive Date: 20220909
  Receipt Date: 20220909
  Transmission Date: 20221027
  Serious: No
  Sender: FDA-Public Use
  Company Number: None

PATIENT
  Age: 65 Year
  Sex: Male
  Weight: 62.9 kg

DRUGS (1)
  1. ENTECAVIR [Suspect]
     Active Substance: ENTECAVIR
     Indication: Hepatitis
     Dosage: OTHER FREQUENCY : EVERY3RD DAY;?
     Route: 048
     Dates: start: 20220709

REACTIONS (2)
  - Hypoglycaemia [None]
  - Metabolic encephalopathy [None]

NARRATIVE: CASE EVENT DATE: 20220904
